FAERS Safety Report 10064786 (Version 1)
Quarter: 2014Q1

REPORT INFORMATION
  Report Type: Spontaneous
  Country: US (occurrence: None)
  Receive Date: 20140328
  Receipt Date: 20140328
  Transmission Date: 20141002
  Serious: No
  Sender: FDA-Public Use
  Company Number: 1000052915

PATIENT
  Age: 58 Year
  Sex: Female

DRUGS (2)
  1. LINZESS (LINACLOTIDE) (145 MICROGRAM, CAPSULES) [Suspect]
     Indication: IRRITABLE BOWEL SYNDROME
     Dosage: 145 MCG, 1 IN 1 D
     Route: 048
     Dates: start: 201312
  2. LINZESS (LINACLOTIDE) (145 MICROGRAM, CAPSULES) [Suspect]
     Indication: IRRITABLE BOWEL SYNDROME
     Dosage: 145 MCG, 1 IN 1 D
     Route: 048
     Dates: start: 201312

REACTIONS (3)
  - Constipation [None]
  - Therapeutic response unexpected [None]
  - Off label use [None]
